FAERS Safety Report 5873411-5 (Version None)
Quarter: 2008Q3

REPORT INFORMATION
  Report Type: 
  Country: None (occurrence: None)
  Receive Date: 20080908
  Receipt Date: 20080701
  Transmission Date: 20090109
  Serious: No
  Sender: FDA-Public Use
  Company Number: US-BAYER-200828093NA

PATIENT
  Age: 37 Year
  Sex: Female

DRUGS (1)
  1. YAZ [Suspect]
     Indication: DRUG USE FOR UNKNOWN INDICATION
     Route: 048
     Dates: start: 20071101

REACTIONS (3)
  - ABNORMAL SENSATION IN EYE [None]
  - SINUS HEADACHE [None]
  - WITHDRAWAL BLEEDING IRREGULAR [None]
